FAERS Safety Report 17821228 (Version 1)
Quarter: 2020Q2

REPORT INFORMATION
  Report Type: Spontaneous
  Country: JP (occurrence: JP)
  Receive Date: 20200525
  Receipt Date: 20200525
  Transmission Date: 20200714
  Serious: Yes (Death)
  Sender: FDA-Public Use
  Company Number: JP-ASTRAZENECA-2020SE62292

PATIENT
  Age: 60 Year
  Sex: Female

DRUGS (1)
  1. LYNPARZA [Suspect]
     Active Substance: OLAPARIB
     Indication: OVARIAN GERM CELL CANCER STAGE III
     Dosage: 600 MG, INITIAL DOSE UNKNOWN
     Route: 048

REACTIONS (3)
  - Ovarian cancer recurrent [Fatal]
  - Renal impairment [Unknown]
  - Platelet count decreased [Unknown]
